FAERS Safety Report 14301633 (Version 1)
Quarter: 2017Q4

REPORT INFORMATION
  Report Type: Spontaneous
  Country: US (occurrence: US)
  Receive Date: 20171219
  Receipt Date: 20171219
  Transmission Date: 20180321
  Serious: No
  Sender: FDA-Public Use
  Company Number: US-GLAXOSMITHKLINE-US2017194451

PATIENT
  Age: 42 Year
  Sex: Female

DRUGS (1)
  1. ABREVA [Suspect]
     Active Substance: DOCOSANOL
     Indication: ORAL HERPES
     Dosage: UNK
     Dates: start: 20171209, end: 20171212

REACTIONS (4)
  - Condition aggravated [Unknown]
  - Application site scab [Unknown]
  - Swelling face [Unknown]
  - Oral herpes [Unknown]

NARRATIVE: CASE EVENT DATE: 20171210
